FAERS Safety Report 24171062 (Version 1)
Quarter: 2024Q3

REPORT INFORMATION
  Report Type: Spontaneous
  Country: GB (occurrence: GB)
  Receive Date: 20240805
  Receipt Date: 20240805
  Transmission Date: 20241017
  Serious: Yes (Hospitalization, Other)
  Sender: DR REDDYS
  Company Number: None

PATIENT
  Age: 80 Year
  Sex: Female

DRUGS (9)
  1. FONDAPARINUX [Suspect]
     Active Substance: FONDAPARINUX
     Indication: Product used for unknown indication
  2. FERROUS SULFATE [Concomitant]
     Active Substance: FERROUS SULFATE
     Indication: Product used for unknown indication
     Dosage: 200MG TABLETS 2 OD 56 TABLET
  3. LEVOTHYROXINE SODIUM [Concomitant]
     Active Substance: LEVOTHYROXINE SODIUM
     Indication: Hypothyroidism
     Dosage: 100MICROGRAM TABLETS ONE TO BE TAKEN EACH MORNING PREFERABLY 30-60 MINUTES BEFORE BREAKFAST, CAFFEIN
  4. CALCIUM CARBONATE\CHOLECALCIFEROL [Concomitant]
     Active Substance: CALCIUM CARBONATE\CHOLECALCIFEROL
     Indication: Product used for unknown indication
     Dosage: 1500MG/400UNIT CHEWABLE TABLETS (TEVA UK LTD) 1 BD 56 TABLET
  5. ATORVASTATIN [Concomitant]
     Active Substance: ATORVASTATIN
     Indication: Product used for unknown indication
     Dosage: 10MG TABLETS OD 28 TABLET
  6. MOXONIDINE [Concomitant]
     Active Substance: MOXONIDINE
     Indication: Product used for unknown indication
     Dosage: 300MICROGRAM TABLETS OD 28 TABLET
  7. NIFEDIPINE [Concomitant]
     Active Substance: NIFEDIPINE
     Indication: Product used for unknown indication
     Dosage: 20MG MODIFIED-RELEASE CAPSULES TAKE ONE TWICE DAILY 56 CAPSULE
  8. GABAPENTIN [Concomitant]
     Active Substance: GABAPENTIN
     Indication: Product used for unknown indication
     Dosage: 300MG CAPSULES ONE TO BE TAKEN THREE TIMES A DAY.
  9. ENSURE COMPACT [Concomitant]
     Indication: Product used for unknown indication
     Dosage: (FLAVOUR NOT SPECIFIED) 125ML TO BE TAKEN TWICE A DAY 3500 ML

REACTIONS (2)
  - Haematoma muscle [Recovered/Resolved]
  - Thrombosis [Unknown]
